FAERS Safety Report 19263901 (Version 3)
Quarter: 2021Q3

REPORT INFORMATION
  Report Type: Spontaneous
  Country: US (occurrence: US)
  Receive Date: 20210517
  Receipt Date: 20210811
  Transmission Date: 20211014
  Serious: No
  Sender: FDA-Public Use
  Company Number: US-GLAXOSMITHKLINE-US2021103015

PATIENT
  Sex: Female

DRUGS (3)
  1. ZEJULA [Suspect]
     Active Substance: NIRAPARIB
     Dosage: 200 MG, QD
     Route: 048
  2. ZEJULA [Suspect]
     Active Substance: NIRAPARIB
     Dosage: 200 MG, QD
     Route: 048
  3. ZEJULA [Suspect]
     Active Substance: NIRAPARIB
     Indication: OVARIAN CANCER
     Dosage: 200 MG, QD (QPM)
     Dates: start: 20210429

REACTIONS (8)
  - Lacrimation increased [Unknown]
  - Eye pruritus [Unknown]
  - Vision blurred [Unknown]
  - Blood glucose increased [Recovering/Resolving]
  - Heart rate increased [Not Recovered/Not Resolved]
  - Fatigue [Unknown]
  - Visual impairment [Unknown]
  - Blood pressure increased [Recovering/Resolving]
